FAERS Safety Report 11538724 (Version 1)
Quarter: 2015Q3

REPORT INFORMATION
  Report Type: Spontaneous
  Country: US (occurrence: None)
  Receive Date: 20150921
  Receipt Date: 20150921
  Transmission Date: 20151125
  Serious: No
  Sender: FDA-Public Use
  Company Number: None

PATIENT
  Age: 66 Year
  Sex: Female
  Weight: 61.24 kg

DRUGS (7)
  1. VITAMIN D3 [Suspect]
     Active Substance: CHOLECALCIFEROL
  2. CENTRUM SILVER [Concomitant]
     Active Substance: VITAMINS
  3. SPIROLACTONE [Concomitant]
     Active Substance: SPIRONOLACTONE
  4. VIVELLE DOT [Concomitant]
     Active Substance: ESTRADIOL
  5. LOSARTAN. [Concomitant]
     Active Substance: LOSARTAN
  6. VENLAFAXINE HCL [Concomitant]
     Active Substance: VENLAFAXINE HYDROCHLORIDE
  7. VENLAFAXINE HCL ER 37.5MG AUROBINDO PHARMACEUTICALS [Suspect]
     Active Substance: VENLAFAXINE HYDROCHLORIDE
     Indication: DEPRESSION
     Route: 048
     Dates: start: 20150728, end: 20150730

REACTIONS (3)
  - Product quality issue [None]
  - Drug withdrawal syndrome [None]
  - Product substitution issue [None]

NARRATIVE: CASE EVENT DATE: 20150728
